FAERS Safety Report 11922944 (Version 1)
Quarter: 2016Q1

REPORT INFORMATION
  Report Type: Report from Study
  Country: NL (occurrence: NL)
  Receive Date: 20160116
  Receipt Date: 20160116
  Transmission Date: 20160526
  Serious: Yes (Other)
  Sender: FDA-Public Use
  Company Number: NL-AMGEN-NLDSL2016003164

PATIENT
  Age: 69 Year
  Sex: Male

DRUGS (14)
  1. MACROGOL [Concomitant]
     Active Substance: POLYETHYLENE GLYCOLS
     Dosage: UNK UNK, QD
     Dates: start: 20150813
  2. DUTASTERIDE. [Concomitant]
     Active Substance: DUTASTERIDE
     Dosage: 0.5 MG, QD
     Route: 048
  3. TAMSULOSINE [Concomitant]
     Active Substance: TAMSULOSIN HYDROCHLORIDE
     Dosage: 0.4 MG, QD
     Route: 048
     Dates: start: 20150813
  4. ZOLADEX [Concomitant]
     Active Substance: GOSERELIN ACETATE
  5. CASODEX [Concomitant]
     Active Substance: BICALUTAMIDE
  6. METOCLOPRAMIDE. [Concomitant]
     Active Substance: METOCLOPRAMIDE
     Dosage: 10 MG, QD
     Route: 048
     Dates: start: 20150909
  7. GOSERELINE [Concomitant]
     Active Substance: GOSERELIN
     Dosage: 10.8 MG, QD
     Dates: start: 20150625
  8. PREDNISOLONE. [Concomitant]
     Active Substance: PREDNISOLONE
     Dosage: 5 MG, QD
     Route: 048
     Dates: start: 20150813
  9. XGEVA [Suspect]
     Active Substance: DENOSUMAB
     Indication: PRODUCT USED FOR UNKNOWN INDICATION
     Dosage: 120 MG, Q4WK
     Route: 058
     Dates: start: 20150814
  10. PREDNISONE. [Concomitant]
     Active Substance: PREDNISONE
  11. ONDANSETRON [Concomitant]
     Active Substance: ONDANSETRON
     Dosage: 08 MG, QD
     Route: 048
     Dates: start: 20150909
  12. BUPRENORFINE MYLAN [Concomitant]
     Dosage: 10 MUG, QD
     Dates: start: 20160106, end: 20160127
  13. TAXOTERE [Concomitant]
     Active Substance: DOCETAXEL
     Dosage: 20 MG/ML FL 1 ML, UNK
     Dates: start: 20150814, end: 20160210
  14. OXYCODONE [Concomitant]
     Active Substance: OXYCODONE
     Dosage: 5 MG, QD
     Route: 048
     Dates: start: 20150813

REACTIONS (4)
  - Hyperhidrosis [Unknown]
  - Dizziness [Not Recovered/Not Resolved]
  - Asthenia [Not Recovered/Not Resolved]
  - Diarrhoea haemorrhagic [Recovering/Resolving]

NARRATIVE: CASE EVENT DATE: 20160107
